FAERS Safety Report 9895143 (Version 2)
Quarter: 2014Q1

REPORT INFORMATION
  Report Type: Spontaneous
  Country: US (occurrence: US)
  Receive Date: 20140213
  Receipt Date: 20140213
  Transmission Date: 20141002
  Serious: No
  Sender: FDA-Public Use
  Company Number: US-BRISTOL-MYERS SQUIBB COMPANY-18910885

PATIENT
  Age: 52 Year
  Sex: Female
  Weight: 97.5 kg

DRUGS (8)
  1. ABATACEPT SUBQ INJECTION 125MG/ML [Suspect]
     Indication: RHEUMATOID ARTHRITIS
     Route: 058
     Dates: start: 20130109, end: 20130424
  2. PLAQUENIL [Concomitant]
     Dosage: 2PILLS
  3. CALCIUM CARBONATE [Concomitant]
     Dosage: 2PILLS
  4. PREDNISONE [Concomitant]
  5. SYNTHROID [Concomitant]
     Dosage: QAM
  6. ARAVA [Concomitant]
  7. PANTOPRAZOLE [Concomitant]
     Indication: ERUCTATION
  8. AZATHIOPRINE [Concomitant]
     Indication: RHEUMATOID ARTHRITIS

REACTIONS (7)
  - Injection site reaction [Unknown]
  - Pain [Unknown]
  - Erythema [Unknown]
  - Local swelling [Recovering/Resolving]
  - Nausea [Recovered/Resolved]
  - Vomiting [Recovered/Resolved]
  - Eructation [Recovering/Resolving]
